FAERS Safety Report 8519513-6 (Version None)
Quarter: 2012Q3

REPORT INFORMATION
  Report Type: 
  Country: None (occurrence: None)
  Receive Date: 20120718
  Receipt Date: 20120705
  Transmission Date: 20120928
  Serious: No
  Sender: FDA-Public Use
  Company Number: US-ASTRAZENECA-2012SE30838

PATIENT
  Age: 50 Year
  Sex: Female
  Weight: 65.8 kg

DRUGS (4)
  1. ZOCOR [Concomitant]
     Indication: GASTROOESOPHAGEAL REFLUX DISEASE
  2. NEXIUM [Suspect]
     Route: 048
     Dates: start: 20120222
  3. NEXIUM [Suspect]
     Route: 048
     Dates: start: 20120413
  4. NEXIUM [Suspect]
     Indication: GASTROOESOPHAGEAL REFLUX DISEASE
     Route: 048
     Dates: start: 20120201, end: 20120201

REACTIONS (3)
  - DRUG INEFFECTIVE [None]
  - SENSATION OF FOREIGN BODY [None]
  - OFF LABEL USE [None]
